FAERS Safety Report 4502033-3 (Version None)
Quarter: 2004Q4

REPORT INFORMATION
  Report Type: 
  Country: None (occurrence: None)
  Receive Date: 20041115
  Receipt Date: 20041115
  Transmission Date: 20050328
  Serious: Yes (Hospitalization)
  Sender: FDA-Public Use
  Company Number: None

PATIENT
  Sex: Female
  Weight: 62 kg

DRUGS (9)
  1. WELLBUTRIN SR [Suspect]
     Indication: DEPRESSION
     Dosage: 150MG BID ORAL
     Route: 048
     Dates: start: 20041005, end: 20041008
  2. ZOLOFT [Concomitant]
  3. METFORMIN HCL [Concomitant]
  4. GLIPIZIDE [Concomitant]
  5. ACTOS [Concomitant]
  6. PROTONIX [Concomitant]
  7. TRICOR [Concomitant]
  8. NEURONTIN [Concomitant]
  9. PREMARIN [Concomitant]

REACTIONS (1)
  - BLOOD GLUCOSE DECREASED [None]
